FAERS Safety Report 5296805-8 (Version None)
Quarter: 2007Q2

REPORT INFORMATION
  Report Type: 
  Country: None (occurrence: None)
  Receive Date: 20070413
  Receipt Date: 20070404
  Transmission Date: 20071010
  Serious: Yes (Other)
  Sender: FDA-Public Use
  Company Number: GB-PFIZER INC-2007027384

PATIENT
  Age: 78 Year
  Sex: Male

DRUGS (2)
  1. VIAGRA [Suspect]
     Route: 048
  2. WARFARIN SODIUM [Concomitant]

REACTIONS (7)
  - BLEPHARITIS [None]
  - CATARACT [None]
  - CYANOPSIA [None]
  - DRUG EFFECT DECREASED [None]
  - DRUG INEFFECTIVE [None]
  - DRY EYE [None]
  - RETINAL VASCULAR DISORDER [None]
